FAERS Safety Report 16151867 (Version 1)
Quarter: 2019Q2

REPORT INFORMATION
  Report Type: Spontaneous
  Country: GB (occurrence: GB)
  Receive Date: 20190403
  Receipt Date: 20190403
  Transmission Date: 20190711
  Serious: Yes (Other)
  Sender: FDA-Public Use
  Company Number: GB-MYLANLABS-2019M1029420

PATIENT
  Age: 74 Year
  Sex: Male

DRUGS (12)
  1. METFORMIN [Concomitant]
     Active Substance: METFORMIN HYDROCHLORIDE
     Dosage: 2000 MILLIGRAM, QD
     Dates: start: 20181115
  2. METHOTREXATE. [Concomitant]
     Active Substance: METHOTREXATE
     Dosage: 12.5 MILLIGRAM, QW
     Dates: start: 20181115
  3. CALCICHEW D3 [Concomitant]
     Active Substance: CALCIUM\CHOLECALCIFEROL
     Dosage: 2 DOSAGE FORM, QD
     Dates: start: 20181115
  4. FOLIC ACID. [Concomitant]
     Active Substance: FOLIC ACID
     Dosage: EXCEPT ON MONDAYS
     Dates: start: 20181115
  5. DONEPEZIL. [Suspect]
     Active Substance: DONEPEZIL
     Indication: PRODUCT USED FOR UNKNOWN INDICATION
     Dosage: 10 MILLIGRAM
  6. ANUSOL HC                          /08103601/ [Concomitant]
     Dosage: APPLY AFTER EVERY BOWEL MOTION FOR THE NEXT 10 DAYS
     Dates: start: 20181119
  7. RISPERIDONE. [Concomitant]
     Active Substance: RISPERIDONE
     Dosage: 500 MICROGRAM, QD
     Dates: start: 20181119
  8. VITAMIN B [Concomitant]
     Active Substance: VITAMIN B
     Dosage: 3 DOSAGE FORM, QD
     Dates: start: 20181030, end: 20181030
  9. PARACETAMOL [Concomitant]
     Active Substance: ACETAMINOPHEN
     Dosage: 1 TO 2 UP TO FOUR TIMES DAILY
     Dates: start: 20181106, end: 20181121
  10. SUDOCREM [Concomitant]
     Active Substance: LANOLIN\ZINC OXIDE
     Dosage: APPLY
     Dates: start: 20181106
  11. LACTULOSE. [Concomitant]
     Active Substance: LACTULOSE
     Dosage: ONE DAILY (AS NECESSARY)
     Route: 048
     Dates: start: 20181119
  12. E45 [Concomitant]
     Active Substance: LANOLIN\LIGHT MINERAL OIL\PARAFFIN
     Indication: DRY SKIN
     Dosage: UNK
     Route: 061
     Dates: start: 20181106

REACTIONS (2)
  - Abnormal behaviour [Unknown]
  - Hyperthyroidism [Unknown]
